FAERS Safety Report 11045837 (Version 3)
Quarter: 2015Q3

REPORT INFORMATION
  Report Type: Spontaneous
  Country: US (occurrence: US)
  Receive Date: 20150417
  Receipt Date: 20150713
  Transmission Date: 20151125
  Serious: Yes (Death)
  Sender: FDA-Public Use
  Company Number: US-TEVA-554511USA

PATIENT
  Sex: Male

DRUGS (1)
  1. GRANIX [Suspect]
     Active Substance: TBO-FILGRASTIM
     Route: 065
     Dates: end: 20150218

REACTIONS (1)
  - Metastatic neoplasm [Fatal]
